FAERS Safety Report 20720572 (Version 2)
Quarter: 2022Q2

REPORT INFORMATION
  Report Type: Report from Study
  Country: US (occurrence: US)
  Receive Date: 20220418
  Receipt Date: 20220513
  Transmission Date: 20220721
  Serious: Yes (Other)
  Sender: FDA-Public Use
  Company Number: US-UCBSA-2022008155

PATIENT
  Age: 69 Year
  Sex: Male

DRUGS (4)
  1. CERTOLIZUMAB PEGOL [Suspect]
     Active Substance: CERTOLIZUMAB PEGOL
     Indication: Rheumatoid arthritis
     Dosage: 400 MILLIGRAM, EV 2 WEEKS(QOW)
     Route: 058
     Dates: start: 20220120, end: 2022
  2. CERTOLIZUMAB PEGOL [Suspect]
     Active Substance: CERTOLIZUMAB PEGOL
     Dosage: 400 MILLIGRAM, EV 4 WEEKS
     Route: 058
     Dates: start: 2022, end: 202203
  3. DOXYCYCLINE [Suspect]
     Active Substance: DOXYCYCLINE
     Indication: Product used for unknown indication
  4. PREDNISONE [Concomitant]
     Active Substance: PREDNISONE
     Indication: Product used for unknown indication

REACTIONS (11)
  - Pneumonia [Not Recovered/Not Resolved]
  - Stevens-Johnson syndrome [Recovering/Resolving]
  - Laser therapy [Not Recovered/Not Resolved]
  - Cataract [Not Recovered/Not Resolved]
  - Cataract operation [Not Recovered/Not Resolved]
  - Fatigue [Recovered/Resolved]
  - Anxiety [Recovered/Resolved]
  - Nervousness [Recovered/Resolved]
  - Fear [Recovered/Resolved]
  - Feeling abnormal [Not Recovered/Not Resolved]
  - Inappropriate schedule of product administration [Unknown]

NARRATIVE: CASE EVENT DATE: 20220120
